FAERS Safety Report 7761250-X (Version None)
Quarter: 2011Q3

REPORT INFORMATION
  Report Type: 
  Country: None (occurrence: None)
  Receive Date: 20110920
  Receipt Date: 20110908
  Transmission Date: 20111222
  Serious: Yes (Hospitalization, Other)
  Sender: FDA-Public Use
  Company Number: US-JNJFOC-20110905104

PATIENT
  Sex: Female
  Weight: 86.18 kg

DRUGS (13)
  1. CLONIDINE [Concomitant]
     Route: 065
  2. COMBIVENT [Concomitant]
     Indication: ASTHMA
     Route: 065
  3. POTASSIUM [Suspect]
     Indication: PRODUCT USED FOR UNKNOWN INDICATION
     Route: 042
  4. FLONASE [Concomitant]
     Indication: ASTHMA
     Route: 045
  5. DURAGESIC-100 [Suspect]
     Indication: BACK PAIN
     Dosage: 100UG/HR + 100UG/HR
     Route: 062
     Dates: start: 20030101, end: 20090101
  6. PHENERGAN HCL [Suspect]
     Indication: PRODUCT USED FOR UNKNOWN INDICATION
     Route: 065
  7. ACIPHEX [Concomitant]
     Indication: GASTROOESOPHAGEAL REFLUX DISEASE
     Route: 048
  8. FLEXERIL [Concomitant]
     Indication: MUSCLE SPASMS
     Route: 048
  9. KLONOPIN [Concomitant]
     Indication: PANIC ATTACK
     Route: 065
  10. COUMADIN [Concomitant]
     Indication: PROPHYLAXIS
     Route: 048
  11. LASIX [Concomitant]
     Indication: SWELLING
     Route: 048
  12. ADVAIR DISKUS 100/50 [Concomitant]
     Indication: ASTHMA
     Route: 065
  13. DURAGESIC-100 [Suspect]
     Dosage: 100UG/HR + 100UG/HR
     Route: 062
     Dates: start: 20090101

REACTIONS (15)
  - HALLUCINATION [None]
  - PYLORIC STENOSIS [None]
  - PANCREAS DIVISUM [None]
  - DIARRHOEA [None]
  - PRODUCT QUALITY ISSUE [None]
  - ABDOMINAL PAIN UPPER [None]
  - VOMITING [None]
  - PAIN [None]
  - PRURITUS [None]
  - FORMICATION [None]
  - ADVERSE EVENT [None]
  - PANCREATIC DISORDER [None]
  - RENAL CYST [None]
  - PANCREATITIS [None]
  - GASTRIC DISORDER [None]
